FAERS Safety Report 7144860-2 (Version None)
Quarter: 2010Q4

REPORT INFORMATION
  Report Type: 
  Country: None (occurrence: None)
  Receive Date: 20101123
  Receipt Date: 20100817
  Transmission Date: 20110411
  Serious: Yes (Other)
  Sender: FDA-Public Use
  Company Number: TRP_07192_2010

PATIENT
  Age: 45 Year
  Sex: Male

DRUGS (2)
  1. INFERGEN [Suspect]
     Indication: PRODUCT USED FOR UNKNOWN INDICATION
     Dosage: (15 UG)
  2. RIBAPAK (NOT SPECIFIED) [Suspect]
     Indication: PRODUCT USED FOR UNKNOWN INDICATION
     Dosage: (1200 MG, /DAY)

REACTIONS (1)
  - CONVULSION [None]
